FAERS Safety Report 4606578-7 (Version None)
Quarter: 2005Q2

REPORT INFORMATION
  Report Type: 
  Country: None (occurrence: None)
  Receive Date: 20050223
  Receipt Date: 20040709
  Transmission Date: 20051028
  Serious: Yes (Life-Threatening, Hospitalization, Other)
  Sender: FDA-Public Use
  Company Number: WAES 0407USA01004

PATIENT
  Age: 51 Year
  Sex: Female
  Weight: 61.2356 kg

DRUGS (7)
  1. ZOCOR [Suspect]
     Dosage: 40 MG/PO;  80 MG/DAILY/PO;  20 MG/PO
     Route: 048
     Dates: start: 20040607, end: 20040101
  2. ZOCOR [Suspect]
     Dosage: 40 MG/PO;  80 MG/DAILY/PO;  20 MG/PO
     Route: 048
     Dates: end: 20040301
  3. ZOCOR [Suspect]
     Dosage: 40 MG/PO;  80 MG/DAILY/PO;  20 MG/PO
     Route: 048
     Dates: start: 20040301, end: 20040606
  4. ESTRATEST [Concomitant]
  5. PROTONIX [Concomitant]
  6. SERZONE [Concomitant]
  7. WELLBUTRIN [Concomitant]

REACTIONS (1)
  - RHABDOMYOLYSIS [None]
